FAERS Safety Report 17976958 (Version 1)
Quarter: 2020Q3

REPORT INFORMATION
  Report Type: Report from Study
  Country: US (occurrence: US)
  Receive Date: 20200702
  Receipt Date: 20200702
  Transmission Date: 20201103
  Serious: Yes (Hospitalization, Other)
  Sender: FDA-Public Use
  Company Number: US-GILEAD-2020-0473654

PATIENT
  Age: 35 Year
  Sex: Female

DRUGS (32)
  1. SUDAFED [GUAIFENESIN;PSEUDOEPHEDRINE HYDROCHLORIDE] [Concomitant]
     Active Substance: GUAIFENESIN\PSEUDOEPHEDRINE HYDROCHLORIDE
  2. PULMOZYME [Concomitant]
     Active Substance: DORNASE ALFA
  3. VANCOMYCIN [Concomitant]
     Active Substance: VANCOMYCIN
  4. AZTREONAM LYSINE [Suspect]
     Active Substance: AZTREONAM LYSINE
     Indication: CYSTIC FIBROSIS LUNG
     Dosage: 75 MG, TID, 28 DAYS ALTERNATE EVERY OTHER MONTH WITH TOBI
     Route: 055
     Dates: start: 20131108
  5. TRIKAFTA [Concomitant]
     Active Substance: ELEXACAFTOR\IVACAFTOR\TEZACAFTOR
  6. GABAPENTIN. [Concomitant]
     Active Substance: GABAPENTIN
  7. XOPENEX [Concomitant]
     Active Substance: LEVALBUTEROL HYDROCHLORIDE
  8. HYDROXYZINE PAM [Concomitant]
     Active Substance: HYDROXYZINE PAMOATE
  9. METOCLOPRAMIDE. [Concomitant]
     Active Substance: METOCLOPRAMIDE
  10. AZITHROMYCIN ANHYDROUS. [Concomitant]
     Active Substance: AZITHROMYCIN ANHYDROUS
  11. TOBI PODHALER [Concomitant]
     Active Substance: TOBRAMYCIN
  12. CALCIUM [Concomitant]
     Active Substance: CALCIUM
  13. VITAMIN E [DL?ALPHA TOCOPHERYL ACETATE] [Concomitant]
  14. METOCLOPRAM [Concomitant]
     Active Substance: METOCLOPRAMIDE
  15. BUPROPION. [Concomitant]
     Active Substance: BUPROPION
  16. LANTUS [Concomitant]
     Active Substance: INSULIN GLARGINE
  17. NASONEX [Concomitant]
     Active Substance: MOMETASONE FUROATE
  18. SINGULAIR [Concomitant]
     Active Substance: MONTELUKAST SODIUM
  19. LEVOTHYROXINE. [Concomitant]
     Active Substance: LEVOTHYROXINE
  20. RANITIDINE. [Concomitant]
     Active Substance: RANITIDINE
  21. FERREX 150 FORTE [Concomitant]
     Active Substance: CYANOCOBALAMIN\FOLIC ACID\IRON
  22. SYMBICORT [Concomitant]
     Active Substance: BUDESONIDE\FORMOTEROL FUMARATE DIHYDRATE
  23. TOBRAMYCIN. [Concomitant]
     Active Substance: TOBRAMYCIN
  24. XOPENEX HFA [Concomitant]
     Active Substance: LEVALBUTEROL TARTRATE
  25. ALBUTEROL [SALBUTAMOL] [Concomitant]
     Active Substance: ALBUTEROL
  26. OMEPRAZOLE. [Concomitant]
     Active Substance: OMEPRAZOLE
  27. MEPHYTON [Concomitant]
     Active Substance: PHYTONADIONE
  28. SUDAFED NASAL DECONGESTANT MAXIMUM STRENGTH [Concomitant]
     Active Substance: PSEUDOEPHEDRINE HYDROCHLORIDE
  29. FERREX [Concomitant]
     Active Substance: FERRIC POLYSACCHARIDE COMPLEX
  30. NOVOLOG [Concomitant]
     Active Substance: INSULIN ASPART
  31. PANCRELIPASE. [Concomitant]
     Active Substance: PANCRELIPASE
  32. VITAMINS NOS [Concomitant]
     Active Substance: VITAMINS

REACTIONS (1)
  - Cystic fibrosis respiratory infection suppression [Unknown]

NARRATIVE: CASE EVENT DATE: 202005
